FAERS Safety Report 9692543 (Version 1)
Quarter: 2013Q4

REPORT INFORMATION
  Report Type: Spontaneous
  Country: US (occurrence: US)
  Receive Date: 20131118
  Receipt Date: 20131118
  Transmission Date: 20140711
  Serious: Yes (Other)
  Sender: FDA-Public Use
  Company Number: US-BAYER-2013-139890

PATIENT
  Age: 43 Year
  Sex: Female
  Weight: 77.1 kg

DRUGS (6)
  1. GIANVI [Suspect]
     Route: 048
  2. CLARITIN [Concomitant]
  3. MULTIVITAMIN [Concomitant]
  4. CALCIUM [Concomitant]
  5. VITAMIN D [Concomitant]
  6. ESTRADIOL [Concomitant]

REACTIONS (1)
  - Deep vein thrombosis [None]
